FAERS Safety Report 5068952-7 (Version None)
Quarter: 2006Q3

REPORT INFORMATION
  Report Type: 
  Country: None (occurrence: None)
  Receive Date: 20060728
  Receipt Date: 20060712
  Transmission Date: 20061208
  Serious: No
  Sender: FDA-Public Use
  Company Number: JP200606005884

PATIENT
  Age: 32 Year
  Sex: Female

DRUGS (3)
  1. ZYPREXA [Suspect]
     Dosage: 20 MG DAILY (1/D) ORAL
     Route: 048
  2. LAXATIVES [Concomitant]
  3. HYPNOTICS AND SEDATIVES [Concomitant]

REACTIONS (1)
  - WHITE BLOOD CELL COUNT DECREASED [None]
